FAERS Safety Report 23798919 (Version 1)
Quarter: 2024Q2

REPORT INFORMATION
  Report Type: Spontaneous
  Country: US (occurrence: None)
  Receive Date: 20240426
  Receipt Date: 20240426
  Transmission Date: 20240715
  Serious: No
  Sender: FDA-Public Use
  Company Number: None

PATIENT
  Age: 67 Year
  Sex: 0
  Weight: 154.35 kg

DRUGS (4)
  1. KEYTRUDA [Suspect]
     Active Substance: PEMBROLIZUMAB
     Indication: Prophylaxis
  2. C-PAP [Concomitant]
  3. VITAMIN D [Concomitant]
     Active Substance: VITAMIN D NOS
  4. MAGNESIUM [Concomitant]
     Active Substance: MAGNESIUM

REACTIONS (14)
  - Nausea [None]
  - Vomiting [None]
  - Weight decreased [None]
  - Diarrhoea [None]
  - Chills [None]
  - Asthenia [None]
  - Myalgia [None]
  - Bone pain [None]
  - Decreased appetite [None]
  - Dysstasia [None]
  - Hypotension [None]
  - Dehydration [None]
  - Clear cell renal cell carcinoma [None]
  - Retching [None]

NARRATIVE: CASE EVENT DATE: 20231018
